FAERS Safety Report 5965824-8 (Version None)
Quarter: 2008Q4

REPORT INFORMATION
  Report Type: 
  Country: None (occurrence: None)
  Receive Date: 20081125
  Receipt Date: 20081110
  Transmission Date: 20090506
  Serious: Yes (Death, Life-Threatening, Hospitalization, Other)
  Sender: FDA-Public Use
  Company Number: JP-ROCHE-594030

PATIENT
  Sex: Male
  Weight: 53 kg

DRUGS (48)
  1. VALGANCICLOVIR HCL [Suspect]
     Indication: PNEUMONIA CYTOMEGALOVIRAL
     Route: 048
     Dates: start: 20071022, end: 20071028
  2. BACTRIM [Suspect]
     Indication: OBLITERATIVE BRONCHIOLITIS
     Dosage: ADDITIONAL INDICATION: PNEUMOCYSTIS CARINII PNEUMONIA
     Route: 065
     Dates: start: 20070922, end: 20070922
  3. BACTRIM [Suspect]
     Route: 065
     Dates: start: 20070925, end: 20071007
  4. BACTRIM [Suspect]
     Route: 065
     Dates: start: 20080107
  5. BACTRIM [Suspect]
     Route: 065
     Dates: start: 20080111, end: 20080121
  6. ROCEPHIN [Suspect]
     Indication: OBLITERATIVE BRONCHIOLITIS
     Route: 051
     Dates: start: 20070922, end: 20070922
  7. ROCEPHIN [Suspect]
     Route: 051
     Dates: start: 20070925, end: 20070925
  8. SOLU-MEDROL [Concomitant]
     Dosage: STOP DATE: 2007
     Route: 041
     Dates: start: 20070801
  9. SOLU-MEDROL [Concomitant]
     Route: 041
     Dates: start: 20070101, end: 20070101
  10. NEUPOGEN [Concomitant]
     Dosage: REPORTED AS OTHER AGENTS RELATING TO BLOOD AND BODY FLUIDS
  11. ANTIBIOTIC NOS [Concomitant]
     Dosage: REPORTED AS OTHER ANTIBIOTIC PREPARATIONS (INCLUING MIXED ANTIBIOTIC)
  12. MEROPENEM TRIHYDRATE [Concomitant]
     Route: 041
     Dates: start: 20070926, end: 20070926
  13. MEROPENEM TRIHYDRATE [Concomitant]
     Route: 041
     Dates: start: 20070930, end: 20070930
  14. MEROPENEM TRIHYDRATE [Concomitant]
     Route: 041
     Dates: start: 20071103, end: 20071104
  15. MEROPENEM TRIHYDRATE [Concomitant]
     Route: 041
     Dates: start: 20080122, end: 20080122
  16. MEROPENEM TRIHYDRATE [Concomitant]
     Route: 041
     Dates: start: 20080124, end: 20080124
  17. ISEPAMICIN SULFATE [Concomitant]
  18. TAKEPRON [Concomitant]
     Route: 048
     Dates: start: 20070910
  19. TAKEPRON [Concomitant]
     Route: 048
     Dates: start: 20070922, end: 20070922
  20. TAKEPRON [Concomitant]
     Route: 048
     Dates: start: 20070925, end: 20071007
  21. TAKEPRON [Concomitant]
     Route: 048
     Dates: start: 20071022, end: 20071027
  22. TAKEPRON [Concomitant]
     Route: 048
     Dates: start: 20071027, end: 20071117
  23. TAKEPRON [Concomitant]
     Route: 048
     Dates: start: 20080107
  24. TAKEPRON [Concomitant]
     Route: 048
     Dates: start: 20080111
  25. TAKEPRON [Concomitant]
     Route: 048
     Dates: start: 20080125, end: 20080125
  26. VANCOMYCIN HYDROCHLORIDE [Concomitant]
     Dates: start: 20070930, end: 20070930
  27. VANCOMYCIN HYDROCHLORIDE [Concomitant]
     Dates: start: 20071003
  28. CIPROXAN [Concomitant]
     Route: 041
     Dates: start: 20071004, end: 20071004
  29. CIPROXAN [Concomitant]
     Route: 041
     Dates: start: 20071019, end: 20071021
  30. CIPROXAN [Concomitant]
     Route: 041
     Dates: start: 20080125, end: 20080125
  31. PREDNISOLONE [Concomitant]
     Route: 048
     Dates: start: 20070901, end: 20070901
  32. PREDNISOLONE [Concomitant]
     Route: 048
     Dates: start: 20070922, end: 20070922
  33. PREDNISOLONE [Concomitant]
     Route: 048
     Dates: start: 20070925, end: 20071007
  34. PREDNISOLONE [Concomitant]
     Route: 048
     Dates: start: 20071019, end: 20071021
  35. PREDNISOLONE [Concomitant]
     Route: 048
     Dates: start: 20071022, end: 20071028
  36. PREDNISOLONE [Concomitant]
     Route: 048
     Dates: start: 20071027, end: 20071117
  37. PREDNISOLONE [Concomitant]
     Route: 048
     Dates: start: 20080107
  38. PREDNISOLONE [Concomitant]
     Route: 048
     Dates: start: 20080111
  39. PREDNISOLONE [Concomitant]
     Route: 048
     Dates: start: 20080124, end: 20080124
  40. MUCODYNE [Concomitant]
     Route: 048
     Dates: start: 20080107
  41. MUCODYNE [Concomitant]
     Route: 048
     Dates: start: 20080111
  42. NOVOLIN R [Concomitant]
     Dosage: REPORTED: 18.18.10
     Route: 051
     Dates: start: 20080107
  43. NOVOLIN R [Concomitant]
     Dosage: REPORTED: 18.18.10
     Route: 051
     Dates: start: 20080111
  44. NOVOLIN N [Concomitant]
     Dosage: REPORTED: 0.0.0.8
     Route: 051
     Dates: start: 20080107
  45. NOVOLIN N [Concomitant]
     Dosage: REPORTED: 0.0.0.8
     Route: 051
     Dates: start: 20080111
  46. IMMUNE GLOBULIN INTRAVENOUS (HUMAN) [Concomitant]
     Dosage: DRUG NAME: GAMMA-GLOBULIN (HUMAN NORMAL IMMUNOGLOBULIN).
     Route: 030
     Dates: start: 20080124, end: 20080124
  47. MICAFUNGIN [Concomitant]
     Route: 041
     Dates: start: 20080125, end: 20080125
  48. BENAMBAX [Concomitant]
     Route: 051
     Dates: start: 20080125, end: 20080125

REACTIONS (5)
  - AGRANULOCYTOSIS [None]
  - HYPERTHERMIA [None]
  - NEUTROPENIA [None]
  - OBLITERATIVE BRONCHIOLITIS [None]
  - THROMBOCYTOPENIA [None]
